FAERS Safety Report 8434071-2 (Version None)
Quarter: 2012Q2

REPORT INFORMATION
  Report Type: 
  Country: None (occurrence: None)
  Receive Date: 20120323
  Receipt Date: 20111102
  Transmission Date: 20120825
  Serious: Yes (Other)
  Sender: FDA-Public Use
  Company Number: 163-21880-11083556

PATIENT
  Age: 79 Year
  Sex: Female
  Weight: 67.586 kg

DRUGS (10)
  1. METOPROLOL [Concomitant]
  2. REVLIMID [Suspect]
     Indication: MYELODYSPLASTIC SYNDROME
     Dosage: 5 MG, 1 IN 1 D, PO : 5 MG, PO : 10 MG, 3 TIMES A WEEK, PO
     Route: 048
     Dates: start: 20110325
  3. REVLIMID [Suspect]
     Indication: MYELODYSPLASTIC SYNDROME
     Dosage: 5 MG, 1 IN 1 D, PO : 5 MG, PO : 10 MG, 3 TIMES A WEEK, PO
     Route: 048
     Dates: start: 20110207
  4. REVLIMID [Suspect]
     Indication: MYELODYSPLASTIC SYNDROME
     Dosage: 5 MG, 1 IN 1 D, PO : 5 MG, PO : 10 MG, 3 TIMES A WEEK, PO
     Route: 048
     Dates: start: 20110101
  5. PLAVIX [Concomitant]
  6. IMODIUM [Concomitant]
  7. LOVASTATIN [Concomitant]
  8. FOLIC ACID [Concomitant]
  9. EXJADE [Concomitant]
  10. PL TYLENOL (PARACETAMOL) [Concomitant]

REACTIONS (7)
  - DIARRHOEA [None]
  - KIDNEY INFECTION [None]
  - CHILLS [None]
  - NIGHT SWEATS [None]
  - BLOOD COUNT ABNORMAL [None]
  - CONSTIPATION [None]
  - PYREXIA [None]
